FAERS Safety Report 17457032 (Version 1)
Quarter: 2020Q1

REPORT INFORMATION
  Report Type: Spontaneous
  Country: US (occurrence: US)
  Receive Date: 20200225
  Receipt Date: 20200225
  Transmission Date: 20200409
  Serious: No
  Sender: FDA-Public Use
  Company Number: US-SA-2020SA048438

PATIENT
  Sex: Female

DRUGS (29)
  1. LEVAQUIN [Concomitant]
     Active Substance: LEVOFLOXACIN
  2. BREO ELLIPTA [Concomitant]
     Active Substance: FLUTICASONE FUROATE\VILANTEROL TRIFENATATE
     Dosage: 200-25MCG BLST W/DEV
  3. PROAIR HFA [Concomitant]
     Active Substance: ALBUTEROL SULFATE
     Dosage: PROAIR HFA 90 MCG HFA AER AD
  4. LIDOCAINE. [Concomitant]
     Active Substance: LIDOCAINE
  5. EPINEPHRINE [EPINEPHRINE HYDROCHLORIDE] [Concomitant]
     Dosage: AUTO-INJECTOR
  6. CLARITIN [CLARITHROMYCIN] [Concomitant]
     Active Substance: CLARITHROMYCIN
  7. CALCIUM [Concomitant]
     Active Substance: CALCIUM
  8. VITAMIN D3 [Concomitant]
     Active Substance: CHOLECALCIFEROL
  9. QNASL [Concomitant]
     Active Substance: BECLOMETHASONE DIPROPIONATE
     Dosage: QNASL 80 MCG HFA AER AD
  10. DIPHENHYDRAMINE. [Concomitant]
     Active Substance: DIPHENHYDRAMINE
  11. LIPITOR [Concomitant]
     Active Substance: ATORVASTATIN CALCIUM
  12. MUCINEX [Concomitant]
     Active Substance: GUAIFENESIN
     Dosage: UNK UNK, BID, MUCINEX 600 MG TAB ER 12H
  13. MULTIVITAMINS [VITAMINS NOS] [Concomitant]
     Active Substance: VITAMINS
  14. BENZONATATE. [Concomitant]
     Active Substance: BENZONATATE
  15. ROBITUSSIN COUGH AND CHEST CONGESTION DM [Concomitant]
     Active Substance: DEXTROMETHORPHAN HYDROBROMIDE\GUAIFENESIN
  16. VITAMIN C [Concomitant]
     Active Substance: ASCORBIC ACID
  17. DUPIXENT [Suspect]
     Active Substance: DUPILUMAB
     Indication: ASTHMA
     Dosage: 300 MG, QOW
     Route: 058
     Dates: start: 201911
  18. ACETAMINOPHEN. [Concomitant]
     Active Substance: ACETAMINOPHEN
  19. HIZENTRA [Concomitant]
     Active Substance: HUMAN IMMUNOGLOBULIN G
  20. ZYRTEC [Concomitant]
     Active Substance: CETIRIZINE HYDROCHLORIDE
  21. VITAMIN B NOS [Concomitant]
     Active Substance: VITAMIN B
  22. PREDNISONE. [Concomitant]
     Active Substance: PREDNISONE
  23. XIIDRA [Concomitant]
     Active Substance: LIFITEGRAST
  24. B COMPLEX [VITAMIN B COMPLEX] [Concomitant]
     Dosage: UNK
  25. ZOFRAN [Concomitant]
     Active Substance: ONDANSETRON HYDROCHLORIDE
  26. CAFFEINE. [Concomitant]
     Active Substance: CAFFEINE
  27. LIDOCAINE/PRILOCAINE [Concomitant]
     Active Substance: LIDOCAINE\PRILOCAINE
  28. DOXYCYCLINE HYCLATE. [Concomitant]
     Active Substance: DOXYCYCLINE HYCLATE
  29. BENADRYL [Concomitant]
     Active Substance: DIPHENHYDRAMINE HYDROCHLORIDE

REACTIONS (1)
  - Lung operation [Unknown]
